FAERS Safety Report 7961305-0 (Version None)
Quarter: 2011Q4

REPORT INFORMATION
  Report Type: 
  Country: None (occurrence: None)
  Receive Date: 20111202
  Receipt Date: 20111121
  Transmission Date: 20120403
  Serious: Yes (Death, Hospitalization)
  Sender: FDA-Public Use
  Company Number: 1000025688

PATIENT
  Age: 53 Year
  Sex: Male

DRUGS (2)
  1. DILTIAZEM HYDROCHLORIDE [Suspect]
     Dosage: 120 MG (120 MG)
  2. PROPRANOLOL [Suspect]

REACTIONS (3)
  - CARDIAC ARREST [None]
  - MULTI-ORGAN FAILURE [None]
  - OVERDOSE [None]
